FAERS Safety Report 9336462 (Version 1)
Quarter: 2013Q2

REPORT INFORMATION
  Report Type: Report from Study
  Country: BR (occurrence: BR)
  Receive Date: 20130607
  Receipt Date: 20130607
  Transmission Date: 20140414
  Serious: Yes (Hospitalization)
  Sender: FDA-Public Use
  Company Number: BR-ROCHE-1232151

PATIENT
  Age: 65 Year
  Sex: Female

DRUGS (9)
  1. XOLAIR [Suspect]
     Indication: ASTHMA
     Route: 058
     Dates: end: 201303
  2. LOSARTAN [Concomitant]
     Route: 065
  3. OMEPRAZOLE [Concomitant]
     Route: 065
  4. PERIDAL [Concomitant]
     Route: 065
  5. SPIRIVA [Concomitant]
     Route: 065
  6. SERETIDE [Concomitant]
     Dosage: 50/500MG
     Route: 065
  7. LIPITOR [Concomitant]
     Route: 065
  8. BAMIFIX [Concomitant]
     Route: 065
  9. FLUIMICIL [Concomitant]

REACTIONS (5)
  - Respiratory tract infection fungal [Recovered/Resolved]
  - Nephrolithiasis [Recovered/Resolved]
  - Constipation [Recovered/Resolved]
  - Bladder cyst [Not Recovered/Not Resolved]
  - Memory impairment [Unknown]
